FAERS Safety Report 20637668 (Version 2)
Quarter: 2022Q2

REPORT INFORMATION
  Report Type: Spontaneous
  Country: AU (occurrence: AU)
  Receive Date: 20220325
  Receipt Date: 20220402
  Transmission Date: 20220720
  Serious: Yes (Other)
  Sender: FDA-Public Use
  Company Number: AU-NOVARTISPH-NVSC2022AU060413

PATIENT
  Sex: Female

DRUGS (5)
  1. TEGRETOL XR [Suspect]
     Active Substance: CARBAMAZEPINE
     Indication: Partial seizures
     Dosage: 200 MG, MANE
     Route: 065
  2. TEGRETOL XR [Suspect]
     Active Substance: CARBAMAZEPINE
     Dosage: 300 MG, NOCTE
     Route: 065
  3. VIMPAT [Concomitant]
     Active Substance: LACOSAMIDE
     Indication: Partial seizures
     Dosage: UNK
     Route: 065
  4. BRIVIACT [Concomitant]
     Active Substance: BRIVARACETAM
     Indication: Partial seizures
     Dosage: UNK
     Route: 065
  5. KEPPRA [Concomitant]
     Active Substance: LEVETIRACETAM
     Indication: Partial seizures
     Dosage: UNK
     Route: 065

REACTIONS (21)
  - Partial seizures [Unknown]
  - Retinal haemorrhage [Unknown]
  - Glaucoma [Unknown]
  - Loss of control of legs [Unknown]
  - Photopsia [Unknown]
  - Disorientation [Unknown]
  - Apraxia [Unknown]
  - Anxiety [Unknown]
  - Feeling abnormal [Unknown]
  - Hypoaesthesia [Unknown]
  - Confusional state [Unknown]
  - Memory impairment [Unknown]
  - Tremor [Unknown]
  - Vitreous floaters [Unknown]
  - Food poisoning [Unknown]
  - Irritability [Unknown]
  - Vomiting [Unknown]
  - Dysarthria [Unknown]
  - Intraocular pressure increased [Unknown]
  - Hypoacusis [Unknown]
  - Tinnitus [Unknown]
